FAERS Safety Report 5770469-9 (Version None)
Quarter: 2008Q2

REPORT INFORMATION
  Report Type: 
  Country: None (occurrence: None)
  Receive Date: 20080613
  Receipt Date: 20080505
  Transmission Date: 20081010
  Serious: No
  Sender: FDA-Public Use
  Company Number: US-ABBOTT-08P-163-0450305-00

PATIENT
  Sex: Female
  Weight: 43.334 kg

DRUGS (12)
  1. HUMIRA [Suspect]
     Indication: CROHN'S DISEASE
     Route: 058
     Dates: start: 20070101
  2. FLUOXETINE HCL [Concomitant]
     Indication: DEPRESSION
     Route: 048
  3. VENLAFAXINE HCL [Concomitant]
     Indication: DEPRESSION
     Route: 048
  4. LEVOTHYROXINE SODIUM [Concomitant]
     Indication: HYPOTHYROIDISM
  5. RABEPRAZOLE SODIUM [Concomitant]
     Indication: OESOPHAGEAL ULCER
     Route: 048
  6. DOXEPIN HCL [Concomitant]
     Indication: PRURITUS
     Route: 048
  7. FERROUS SULFATE TAB [Concomitant]
     Indication: MINERAL SUPPLEMENTATION
     Route: 048
  8. HYDROXYZINE [Concomitant]
     Indication: PRURITUS
     Route: 048
  9. TOPIRAMATE [Concomitant]
     Indication: MIGRAINE
     Route: 048
  10. POTASSIUM CHLORIDE [Concomitant]
     Indication: ELECTROLYTE SUBSTITUTION THERAPY
     Route: 048
  11. NAPROXEN [Concomitant]
     Indication: ARTHRALGIA
     Route: 048
  12. VITAMIN B [Concomitant]
     Indication: VITAMIN SUPPLEMENTATION

REACTIONS (3)
  - DRUG INEFFECTIVE [None]
  - FATIGUE [None]
  - MALAISE [None]
